FAERS Safety Report 17784340 (Version 1)
Quarter: 2020Q2

REPORT INFORMATION
  Report Type: Spontaneous
  Country: US (occurrence: US)
  Receive Date: 20200514
  Receipt Date: 20200514
  Transmission Date: 20200714
  Serious: Yes (Life-Threatening)
  Sender: FDA-Public Use
  Company Number: None

PATIENT
  Age: 79 Year
  Sex: Female
  Weight: 84.15 kg

DRUGS (14)
  1. PROBIOTICS [Concomitant]
     Active Substance: PROBIOTICS NOS
  2. ALLOPURINOL. [Concomitant]
     Active Substance: ALLOPURINOL
  3. LOSARTAN. [Concomitant]
     Active Substance: LOSARTAN
  4. SYNTHROID [Concomitant]
     Active Substance: LEVOTHYROXINE SODIUM
  5. ANASTROZOLE. [Concomitant]
     Active Substance: ANASTROZOLE
  6. CENTRUM MULTIVITAMIN [Concomitant]
  7. VITAMIN D [Concomitant]
     Active Substance: VITAMIN D NOS
  8. CALCIUM [Concomitant]
     Active Substance: CALCIUM
  9. ANASTROZOLE 1 MG [Suspect]
     Active Substance: ANASTROZOLE
     Indication: NEOPLASM MALIGNANT
     Dosage: ?          QUANTITY:1 TABLET(S);?
     Route: 048
     Dates: start: 20150730
  10. FISH OIL [Concomitant]
     Active Substance: FISH OIL
  11. VITAMIN C [Concomitant]
     Active Substance: ASCORBIC ACID
  12. FLUOXETINE [Concomitant]
     Active Substance: FLUOXETINE HYDROCHLORIDE
  13. ATENOLOL + CHLORPHALIDONE [Concomitant]
  14. LOW DOSE ASPIRIN [Concomitant]
     Active Substance: ASPIRIN

REACTIONS (5)
  - Anxiety [None]
  - Manufacturing issue [None]
  - Product dispensing error [None]
  - Product label on wrong product [None]
  - Wrong product administered [None]

NARRATIVE: CASE EVENT DATE: 20190826
